FAERS Safety Report 18310277 (Version 1)
Quarter: 2020Q3

REPORT INFORMATION
  Report Type: Spontaneous
  Country: US (occurrence: US)
  Receive Date: 20200924
  Receipt Date: 20200924
  Transmission Date: 20201103
  Serious: Yes (Other)
  Sender: FDA-Public Use
  Company Number: US-PURDUE-USA-2020-0167358

PATIENT
  Age: 27 Year
  Sex: Male

DRUGS (1)
  1. OXYCONTIN [Suspect]
     Active Substance: OXYCODONE HYDROCHLORIDE
     Indication: PRODUCT USED FOR UNKNOWN INDICATION
     Dosage: UNK
     Route: 048

REACTIONS (13)
  - Drug abuse [Unknown]
  - Drug dependence [Unknown]
  - Developmental delay [Unknown]
  - Judgement impaired [Unknown]
  - Cerebral disorder [Unknown]
  - Emotional distress [Unknown]
  - Injury [Unknown]
  - Depression [Unknown]
  - Disturbance in attention [Unknown]
  - Overdose [Unknown]
  - Suicidal behaviour [Unknown]
  - Jaw fracture [Unknown]
  - Asthenia [Unknown]
